FAERS Safety Report 20823716 (Version 1)
Quarter: 2022Q2

REPORT INFORMATION
  Report Type: Spontaneous
  Country: DK (occurrence: None)
  Receive Date: 20220513
  Receipt Date: 20220513
  Transmission Date: 20220721
  Serious: Yes (Hospitalization)
  Sender: FDA-Public Use
  Company Number: 2022A176328

PATIENT
  Age: 82 Year
  Sex: Male
  Weight: 63 kg

DRUGS (2)
  1. DAPAGLIFLOZIN [Suspect]
     Active Substance: DAPAGLIFLOZIN
     Indication: Type 2 diabetes mellitus
     Dosage: STRENGTH: 10 MG
     Route: 048
     Dates: start: 20220328, end: 20220329
  2. ENTRESTO [Concomitant]
     Active Substance: SACUBITRIL\VALSARTAN
     Indication: Cardiac failure chronic
     Dosage: STRENGTH: 49 MG+51 MG
     Route: 048
     Dates: start: 20220315

REACTIONS (13)
  - Weight increased [Unknown]
  - Oliguria [Unknown]
  - Ascites [Unknown]
  - Fatigue [Unknown]
  - Acute kidney injury [Recovered/Resolved]
  - Dizziness [Unknown]
  - Oedema [Unknown]
  - General physical health deterioration [Unknown]
  - Lactic acidosis [Unknown]
  - Hepatic function abnormal [Unknown]
  - Hypoglycaemia [Unknown]
  - Asthenia [Unknown]
  - Hypervolaemia [Unknown]

NARRATIVE: CASE EVENT DATE: 20220301
